FAERS Safety Report 8837756 (Version 1)
Quarter: 2012Q4

REPORT INFORMATION
  Report Type: 
  Country: GB (occurrence: GB)
  Receive Date: 20121012
  Receipt Date: 20121012
  Transmission Date: 20130627
  Serious: Yes (Death, Other)
  Sender: FDA-Public Use
  Company Number: GB-PFIZER INC-2012250408

PATIENT

DRUGS (2)
  1. GABAPENTIN [Suspect]
     Dosage: UNK
  2. METHADONE [Interacting]

REACTIONS (3)
  - Intentional drug misuse [Unknown]
  - Death [Fatal]
  - Drug interaction [Unknown]
